FAERS Safety Report 6962202-X (Version None)
Quarter: 2010Q3

REPORT INFORMATION
  Report Type: 
  Country: None (occurrence: None)
  Receive Date: 20100901
  Receipt Date: 20100901
  Transmission Date: 20110219
  Serious: Yes (Hospitalization)
  Sender: FDA-Public Use
  Company Number: None

PATIENT
  Sex: Female
  Weight: 134.1 kg

DRUGS (2)
  1. CARBOPLATIN [Suspect]
     Dosage: 593 MG
  2. TAXOL [Suspect]
     Dosage: 350 MG

REACTIONS (3)
  - CHILLS [None]
  - INFECTION [None]
  - NEUTROPENIA [None]
